FAERS Safety Report 18333065 (Version 1)
Quarter: 2020Q4

REPORT INFORMATION
  Report Type: Spontaneous
  Country: CA (occurrence: CA)
  Receive Date: 20201001
  Receipt Date: 20201001
  Transmission Date: 20210113
  Serious: Yes (Hospitalization)
  Sender: FDA-Public Use
  Company Number: CA-ACCORD-203196

PATIENT
  Age: 50 Year
  Sex: Male

DRUGS (13)
  1. PIPERACILLIN/TAZOBACTAM [Concomitant]
     Active Substance: PIPERACILLIN SODIUM\TAZOBACTAM SODIUM
  2. CICLOSPORIN [Suspect]
     Active Substance: CYCLOSPORINE
     Indication: IMMUNOSUPPRESSION
  3. SULFAMETHOXAZOLE/TRIMETHOPRIM [Concomitant]
     Active Substance: SULFAMETHOXAZOLE\TRIMETHOPRIM
  4. AMPHOTERICIN B/AMPHOTERICIN B/LIPOSOME [Concomitant]
     Active Substance: AMPHOTERICIN B
  5. MYCOPHENOLIC ACID. [Suspect]
     Active Substance: MYCOPHENOLIC ACID
     Indication: LUNG TRANSPLANT
     Dosage: 1 EVERY 12 HOURS
     Route: 042
  6. TENOFOVIR [Concomitant]
     Active Substance: TENOFOVIR
  7. VALGANCICLOVIR/VALGANCICLOVIR HYDROCHLORIDE [Concomitant]
     Active Substance: VALGANCICLOVIR
  8. ITRACONAZOLE. [Concomitant]
     Active Substance: ITRACONAZOLE
  9. TACROLIMUS. [Suspect]
     Active Substance: TACROLIMUS
     Indication: LUNG TRANSPLANT
     Dosage: 1 EVERY 12 HOURS
     Route: 048
  10. PREDNISONE. [Suspect]
     Active Substance: PREDNISONE
     Indication: LUNG TRANSPLANT
     Route: 048
  11. DOLUTEGRAVIR [Concomitant]
     Active Substance: DOLUTEGRAVIR
  12. METHYLPREDNISOLONE. [Suspect]
     Active Substance: METHYLPREDNISOLONE
     Indication: LUNG TRANSPLANT
     Dosage: 1 EVERY 8 HOURS
     Route: 042
  13. EMTRICITABINE [Concomitant]
     Active Substance: EMTRICITABINE

REACTIONS (8)
  - Drug ineffective [Unknown]
  - Neuralgia [Recovered/Resolved]
  - Pneumonia pneumococcal [Recovered/Resolved]
  - Drug level changed [Unknown]
  - Dyspnoea [Recovered/Resolved]
  - Obliterative bronchiolitis [Recovered/Resolved]
  - Infection [Recovered/Resolved]
  - Pseudomonas infection [Recovered/Resolved]
